FAERS Safety Report 6072544-0 (Version None)
Quarter: 2009Q1

REPORT INFORMATION
  Report Type: 
  Country: None (occurrence: None)
  Receive Date: 20090210
  Receipt Date: 20090203
  Transmission Date: 20090719
  Serious: Yes (Other)
  Sender: FDA-Public Use
  Company Number: US-AVENTIS-200910895US

PATIENT
  Sex: Male

DRUGS (6)
  1. LANTUS [Suspect]
     Route: 058
     Dates: start: 20050101
  2. LANTUS [Suspect]
     Route: 058
  3. OPTICLIK (INSULIN INJECTION PEN) [Suspect]
     Dates: start: 20060101
  4. PLAVIX [Concomitant]
     Dosage: DOSE: UNK
  5. TORSEMIDE [Concomitant]
     Dosage: DOSE: UNK
  6. UNKNOWN DRUG [Concomitant]
     Dosage: DOSE: UNK

REACTIONS (5)
  - BLOOD GLUCOSE DECREASED [None]
  - FATIGUE [None]
  - IRRITABILITY [None]
  - PERICARDIAL EFFUSION [None]
  - VASCULAR OCCLUSION [None]
